FAERS Safety Report 22741961 (Version 12)
Quarter: 2024Q3

REPORT INFORMATION
  Report Type: Spontaneous
  Country: US (occurrence: US)
  Receive Date: 20230724
  Receipt Date: 20240807
  Transmission Date: 20241016
  Serious: Yes (Hospitalization)
  Sender: BIOGEN
  Company Number: US-BIOGEN-2023BI01217308

PATIENT
  Sex: Female

DRUGS (13)
  1. PLEGRIDY [Suspect]
     Active Substance: PEGINTERFERON BETA-1A
     Indication: Multiple sclerosis
     Route: 050
     Dates: start: 20240216
  2. PLEGRIDY [Suspect]
     Active Substance: PEGINTERFERON BETA-1A
     Indication: Multiple sclerosis
     Route: 050
     Dates: start: 20230714
  3. PLEGRIDY [Suspect]
     Active Substance: PEGINTERFERON BETA-1A
     Route: 050
  4. PLEGRIDY [Suspect]
     Active Substance: PEGINTERFERON BETA-1A
     Route: 050
  5. PLEGRIDY [Suspect]
     Active Substance: PEGINTERFERON BETA-1A
     Indication: Multiple sclerosis
     Route: 050
     Dates: start: 20230714
  6. D3-5 [Concomitant]
     Indication: Dizziness
     Route: 050
  7. VITAMIN B COMPLEX [Concomitant]
     Active Substance: CYANOCOBALAMIN\DEXPANTHENOL\NIACINAMIDE\PYRIDOXINE HYDROCHLORIDE\RIBOFLAVIN 5^-PHOSPHATE SODIUM\THIA
     Indication: Dizziness
     Route: 050
  8. PROBIOTICS NOS [Concomitant]
     Active Substance: PROBIOTICS NOS
     Indication: Dizziness
     Route: 050
  9. ZINC [Concomitant]
     Active Substance: ZINC
     Indication: Dizziness
     Route: 050
  10. VITAMIN A [Concomitant]
     Active Substance: VITAMIN A
     Indication: Dizziness
     Route: 050
  11. ALPHA LIPOIC ACID [Concomitant]
     Active Substance: .ALPHA.-LIPOIC ACID
     Indication: Dizziness
     Route: 050
  12. MULTIVITAMIN ADULT [Concomitant]
     Indication: Dizziness
     Route: 050
  13. ULTRA OMEGA-3 [Concomitant]
     Indication: Dizziness
     Route: 050

REACTIONS (19)
  - Injection site cellulitis [Unknown]
  - Multiple sclerosis relapse [Unknown]
  - Product dispensing error [Recovered/Resolved]
  - Injection site swelling [Unknown]
  - Decreased appetite [Unknown]
  - Dizziness [Unknown]
  - Polyuria [Unknown]
  - Hepatitis B antibody abnormal [Unknown]
  - Malaise [Unknown]
  - Feeling abnormal [Unknown]
  - Optic neuritis [Unknown]
  - Multiple sclerosis pseudo relapse [Recovered/Resolved]
  - Drug intolerance [Recovered/Resolved]
  - Stress [Recovered/Resolved]
  - Insomnia [Recovered/Resolved]
  - Injection site rash [Unknown]
  - Injection site haematoma [Recovered/Resolved]
  - Injection site pruritus [Unknown]
  - Injection site pain [Unknown]

NARRATIVE: CASE EVENT DATE: 20190101
